FAERS Safety Report 20969171 (Version 6)
Quarter: 2022Q3

REPORT INFORMATION
  Report Type: Spontaneous
  Country: GB (occurrence: GB)
  Receive Date: 20220616
  Receipt Date: 20220801
  Transmission Date: 20221026
  Serious: Yes (Hospitalization, Other)
  Sender: FDA-Public Use
  Company Number: GB-BAUSCH-BL-2022-015174

PATIENT
  Age: 72 Year
  Sex: Male

DRUGS (16)
  1. RAMIPRIL [Suspect]
     Active Substance: RAMIPRIL
     Indication: Product used for unknown indication
     Route: 065
  2. METFORMIN HYDROCHLORIDE [Suspect]
     Active Substance: METFORMIN HYDROCHLORIDE
     Indication: Product used for unknown indication
     Route: 065
  3. METFORMIN [Suspect]
     Active Substance: METFORMIN HYDROCHLORIDE
     Indication: Product used for unknown indication
     Route: 065
  4. TAMSULOSIN HYDROCHLORIDE [Suspect]
     Active Substance: TAMSULOSIN HYDROCHLORIDE
     Indication: Lower urinary tract symptoms
     Route: 065
  5. TAMSULOSIN HYDROCHLORIDE [Suspect]
     Active Substance: TAMSULOSIN HYDROCHLORIDE
     Route: 065
  6. ATENOLOL [Suspect]
     Active Substance: ATENOLOL
     Indication: Product used for unknown indication
     Route: 065
  7. SIMVASTATIN [Suspect]
     Active Substance: SIMVASTATIN
     Indication: Product used for unknown indication
     Dosage: ONE IN BEDTIME
     Route: 065
  8. ALLOPURINOL [Suspect]
     Active Substance: ALLOPURINOL
     Indication: Product used for unknown indication
     Route: 065
  9. ALLOPURINOL [Suspect]
     Active Substance: ALLOPURINOL
     Route: 065
  10. ASPIRIN [Suspect]
     Active Substance: ASPIRIN
     Indication: Product used for unknown indication
     Dosage: TAKE ONE IN EACH MORNING
     Route: 065
  11. PIOGLITAZONE [Suspect]
     Active Substance: PIOGLITAZONE
     Indication: Product used for unknown indication
     Route: 065
  12. OMEPRAZOLE [Suspect]
     Active Substance: OMEPRAZOLE
     Indication: Product used for unknown indication
     Route: 065
  13. ENZALUTAMIDE [Suspect]
     Active Substance: ENZALUTAMIDE
     Indication: Product used for unknown indication
     Route: 065
  14. GOSERELIN [Suspect]
     Active Substance: GOSERELIN
     Indication: Product used for unknown indication
     Route: 065
  15. XTANDI [Suspect]
     Active Substance: ENZALUTAMIDE
     Indication: Product used for unknown indication
     Route: 065
  16. ASPIRIN [Suspect]
     Active Substance: ASPIRIN
     Indication: Product used for unknown indication
     Route: 065

REACTIONS (6)
  - Malignant spinal cord compression [Recovering/Resolving]
  - Malignant neoplasm progression [Recovering/Resolving]
  - Hypophosphataemia [Unknown]
  - Hypomagnesaemia [Unknown]
  - Erythema [Recovered/Resolved]
  - Pruritus [Recovered/Resolved]

NARRATIVE: CASE EVENT DATE: 20220504
